FAERS Safety Report 4296875-X (Version None)
Quarter: 2004Q1

REPORT INFORMATION
  Report Type: 
  Country: None (occurrence: None)
  Receive Date: 20040126
  Receipt Date: 20030827
  Transmission Date: 20041129
  Serious: No
  Sender: FDA-Public Use
  Company Number: USA030845596

PATIENT
  Age: 10 Year
  Sex: Male
  Weight: 36 kg

DRUGS (3)
  1. STRATTERA [Suspect]
     Indication: ATTENTION DEFICIT/HYPERACTIVITY DISORDER
     Dosage: 60 UG/DAY
     Dates: start: 20030501
  2. CONCERTA [Concomitant]
  3. ADDERALL 10 [Concomitant]

REACTIONS (3)
  - ABNORMAL BEHAVIOUR [None]
  - IRRITABILITY [None]
  - STOOL ANALYSIS ABNORMAL [None]
